FAERS Safety Report 10767208 (Version 1)
Quarter: 2015Q1

REPORT INFORMATION
  Report Type: Spontaneous
  Country: AT (occurrence: AT)
  Receive Date: 20150205
  Receipt Date: 20150205
  Transmission Date: 20150721
  Serious: Yes (Disabling)
  Sender: FDA-Public Use
  Company Number: AT-PFIZER INC-2015040628

PATIENT
  Sex: Male

DRUGS (2)
  1. XALKORI [Suspect]
     Active Substance: CRIZOTINIB
     Dosage: 250 MG, UNK
  2. XALKORI [Suspect]
     Active Substance: CRIZOTINIB
     Indication: LUNG CARCINOMA CELL TYPE UNSPECIFIED STAGE 0
     Dosage: 250 MG, 2X/DAY
     Dates: start: 20140701

REACTIONS (4)
  - Retinal detachment [Not Recovered/Not Resolved]
  - Rash [Recovering/Resolving]
  - Oedema peripheral [Unknown]
  - Liver function test abnormal [Recovering/Resolving]
